FAERS Safety Report 8844605 (Version 1)
Quarter: 2012Q4

REPORT INFORMATION
  Report Type: 
  Country: US (occurrence: US)
  Receive Date: 20121017
  Receipt Date: 20121017
  Transmission Date: 20130627
  Serious: No
  Sender: FDA-Public Use
  Company Number: US-PFIZER INC-2012254843

PATIENT
  Age: 49 Year
  Sex: Male
  Weight: 68.03 kg

DRUGS (12)
  1. PROTONIX [Suspect]
     Indication: DYSPEPSIA
     Dosage: 40 mg, Daily
     Route: 048
     Dates: start: 20120329
  2. ZANAFLEX [Concomitant]
     Dosage: 32 mg, UNK
  3. ZANAFLEX [Concomitant]
     Dosage: 8 mg, UNK
  4. NEURONTIN [Concomitant]
     Dosage: 3600 mg in a day
  5. TRAZODONE [Concomitant]
     Dosage: 50 mg, UNK
  6. DILAUDID [Concomitant]
     Dosage: 16 mg, UNK
  7. DILAUDID [Concomitant]
     Dosage: 4 mg, UNK
  8. LYRICA [Concomitant]
     Dosage: 50 mg, UNK
  9. PHENAZOPYRIDINE [Concomitant]
     Dosage: 400 mg, 1x/day
  10. NAPROXEN [Concomitant]
     Dosage: 1000 mg, UNK
  11. COLACE [Concomitant]
     Dosage: 300 mg, UNK
  12. VESICARE [Concomitant]
     Dosage: 30 mg, UNK

REACTIONS (1)
  - Drug screen false positive [Unknown]
